FAERS Safety Report 9344329 (Version 1)
Quarter: 2013Q2

REPORT INFORMATION
  Report Type: Spontaneous
  Country: US (occurrence: US)
  Receive Date: 20130612
  Receipt Date: 20130612
  Transmission Date: 20140414
  Serious: Yes (Hospitalization)
  Sender: FDA-Public Use
  Company Number: US-BAYER-2013-071627

PATIENT
  Age: 22 Year
  Sex: Female

DRUGS (5)
  1. YASMIN [Suspect]
  2. OCELLA [Suspect]
  3. PITOCIN [Concomitant]
  4. CEREBYX [Concomitant]
  5. ATIVAN [Concomitant]

REACTIONS (1)
  - Cerebral haemorrhage [Recovering/Resolving]
